FAERS Safety Report 9288117 (Version 1)
Quarter: 2013Q2

REPORT INFORMATION
  Report Type: Spontaneous
  Country: DO (occurrence: DO)
  Receive Date: 20130514
  Receipt Date: 20130514
  Transmission Date: 20140414
  Serious: Yes (Death, Other)
  Sender: FDA-Public Use
  Company Number: DO-JNJFOC-20130500407

PATIENT
  Sex: 0

DRUGS (9)
  1. LEVOFLOXACIN [Suspect]
     Indication: TUBERCULOSIS
     Route: 065
  2. OFLOXACIN [Suspect]
     Indication: TUBERCULOSIS
     Route: 065
  3. KANAMYCIN [Suspect]
     Indication: TUBERCULOSIS
     Route: 065
  4. ETHIONAMIDE [Suspect]
     Indication: TUBERCULOSIS
     Route: 065
  5. CYCLOSERINE [Suspect]
     Indication: TUBERCULOSIS
     Route: 065
  6. PYRAZINAMIDE [Suspect]
     Indication: TUBERCULOSIS
     Route: 065
  7. ETHAMBUTOL [Suspect]
     Indication: TUBERCULOSIS
     Route: 065
  8. CAPREOMYCIN [Suspect]
     Indication: TUBERCULOSIS
     Route: 065
  9. VITAMIN B6 [Concomitant]
     Indication: VITAMIN SUPPLEMENTATION
     Route: 065

REACTIONS (5)
  - Death [Fatal]
  - Treatment failure [Unknown]
  - Treatment noncompliance [Unknown]
  - Adverse event [Unknown]
  - Gastrointestinal disorder [Unknown]
